FAERS Safety Report 9776266 (Version 1)
Quarter: 2013Q4

REPORT INFORMATION
  Report Type: Spontaneous
  Country: TR (occurrence: TR)
  Receive Date: 20131220
  Receipt Date: 20131220
  Transmission Date: 20140711
  Serious: Yes (Hospitalization)
  Sender: FDA-Public Use
  Company Number: TR-MYLANLABS-2013S1027731

PATIENT
  Age: 82 Year
  Sex: Female

DRUGS (6)
  1. ARTEMISIA [Suspect]
     Indication: OROPHARYNGEAL PAIN
     Route: 048
  2. WARFARIN [Interacting]
     Indication: ATRIAL FIBRILLATION
     Dosage: 2.5 MG/DAY
     Route: 065
  3. NEBIVOLOL [Concomitant]
     Route: 065
  4. CO-DIOVAN [Concomitant]
     Route: 065
  5. LEVOTHYROXINE SODIUM [Concomitant]
     Route: 065
  6. ESOMEPRAZOLE [Concomitant]
     Route: 065

REACTIONS (5)
  - Gastrointestinal haemorrhage [Recovered/Resolved]
  - International normalised ratio increased [Recovering/Resolving]
  - Drug interaction [Recovered/Resolved]
  - Haemoglobin decreased [None]
  - Haematocrit decreased [None]
